FAERS Safety Report 14291398 (Version 2)
Quarter: 2018Q1

REPORT INFORMATION
  Report Type: Spontaneous
  Country: IE (occurrence: IE)
  Receive Date: 20171215
  Receipt Date: 20180103
  Transmission Date: 20180509
  Serious: Yes (Death, Other)
  Sender: FDA-Public Use
  Company Number: IE-MYLANLABS-2017M1078461

PATIENT
  Age: 72 Year
  Sex: Female
  Weight: 39 kg

DRUGS (8)
  1. NOVORAPID [Concomitant]
     Active Substance: INSULIN ASPART
     Dosage: UNK UNK, BID
     Route: 058
     Dates: end: 20171019
  2. NOVORAPID [Concomitant]
     Active Substance: INSULIN ASPART
     Indication: DIABETES MELLITUS
     Dosage: UNK UNK, AM
     Route: 058
     Dates: end: 20171019
  3. CLOZARIL [Suspect]
     Active Substance: CLOZAPINE
     Indication: SCHIZOPHRENIA
     Dosage: 300 MG, PM
     Route: 048
     Dates: start: 20100121, end: 20171016
  4. DULOXETINE. [Concomitant]
     Active Substance: DULOXETINE
     Indication: SCHIZOAFFECTIVE DISORDER
     Dosage: 30 MG, AM
     Route: 048
     Dates: end: 20171017
  5. PRAVASTATIN. [Concomitant]
     Active Substance: PRAVASTATIN
     Indication: SCHIZOAFFECTIVE DISORDER
     Dosage: 20 MG, PM
     Route: 048
     Dates: end: 20171016
  6. ASPIRIN. [Concomitant]
     Active Substance: ASPIRIN
     Indication: SCHIZOAFFECTIVE DISORDER
     Dosage: 75 MG, QD
     Route: 048
     Dates: end: 20171019
  7. HALOPERIDOL. [Concomitant]
     Active Substance: HALOPERIDOL
     Indication: SCHIZOAFFECTIVE DISORDER
     Dosage: 1 MG, BID
     Route: 048
     Dates: end: 20171016
  8. BISOPROLOL [Concomitant]
     Active Substance: BISOPROLOL
     Indication: SCHIZOAFFECTIVE DISORDER
     Dosage: 2.5 MG, QD
     Route: 048
     Dates: end: 20171019

REACTIONS (3)
  - Pneumonia streptococcal [Unknown]
  - Acetonaemia [Unknown]
  - Death [Fatal]

NARRATIVE: CASE EVENT DATE: 20171103
